FAERS Safety Report 13749351 (Version 1)
Quarter: 2017Q3

REPORT INFORMATION
  Report Type: Spontaneous
  Country: US (occurrence: US)
  Receive Date: 20170713
  Receipt Date: 20170713
  Transmission Date: 20171127
  Serious: Yes (Hospitalization)
  Sender: FDA-Public Use
  Company Number: None

PATIENT
  Age: 52 Year
  Sex: Male
  Weight: 128.6 kg

DRUGS (20)
  1. ALBUTEROL. [Concomitant]
     Active Substance: ALBUTEROL
  2. ROCEPHIN [Concomitant]
     Active Substance: CEFTRIAXONE SODIUM
  3. SOFOSBUVIR 400 GILEAD SCIENCES, INC. [Suspect]
     Active Substance: SOFOSBUVIR
     Indication: HEPATITIS C
     Route: 048
     Dates: start: 20160630, end: 20161215
  4. LACTULOSE. [Concomitant]
     Active Substance: LACTULOSE
  5. POTASSIUM CHLORIDE. [Concomitant]
     Active Substance: POTASSIUM CHLORIDE
  6. CLAFORAN [Concomitant]
     Active Substance: CEFOTAXIME SODIUM
  7. CIPRO [Concomitant]
     Active Substance: CIPROFLOXACIN HYDROCHLORIDE
  8. TYLENOL [Concomitant]
     Active Substance: ACETAMINOPHEN
  9. ALDACTONE [Concomitant]
     Active Substance: SPIRONOLACTONE
  10. INDERAL [Suspect]
     Active Substance: PROPRANOLOL HYDROCHLORIDE
  11. METOLAZONE. [Concomitant]
     Active Substance: METOLAZONE
  12. DACLATASVIR. [Suspect]
     Active Substance: DACLATASVIR
     Indication: HEPATITIS C
     Route: 048
     Dates: start: 20160630, end: 20161215
  13. RIFAXIMIN [Concomitant]
     Active Substance: RIFAXIMIN
  14. FENTANYL. [Concomitant]
     Active Substance: FENTANYL
  15. ALBUMIN [Concomitant]
     Active Substance: ALBUMIN HUMAN
  16. LASIX [Concomitant]
     Active Substance: FUROSEMIDE
  17. SYMBICORT [Concomitant]
     Active Substance: BUDESONIDE\FORMOTEROL FUMARATE DIHYDRATE
  18. DITROPAN [Concomitant]
     Active Substance: OXYBUTYNIN CHLORIDE
  19. PROTONIX [Concomitant]
     Active Substance: PANTOPRAZOLE SODIUM
  20. BUMEX [Concomitant]
     Active Substance: BUMETANIDE

REACTIONS (6)
  - Ammonia increased [None]
  - Ascites [None]
  - Normocytic anaemia [None]
  - Mental status changes [None]
  - Waist circumference increased [None]
  - Dyspnoea [None]

NARRATIVE: CASE EVENT DATE: 20161204
